FAERS Safety Report 9983291 (Version 1)
Quarter: 2014Q1

REPORT INFORMATION
  Report Type: Spontaneous
  Country: US (occurrence: US)
  Receive Date: 20140307
  Receipt Date: 20140307
  Transmission Date: 20141002
  Serious: No
  Sender: FDA-Public Use
  Company Number: US-009507513-1402USA003200

PATIENT
  Sex: Female

DRUGS (4)
  1. NASONEX [Suspect]
     Dosage: UNK
     Route: 045
     Dates: end: 201306
  2. NASONEX [Suspect]
     Dosage: UNK
     Route: 045
     Dates: start: 201310
  3. QNASL [Concomitant]
     Dosage: UNK
     Route: 045
     Dates: start: 201306
  4. QNASL [Concomitant]
     Dosage: UNK
     Route: 045

REACTIONS (3)
  - Hypersensitivity [Unknown]
  - Dysphagia [Unknown]
  - Pharyngeal inflammation [Unknown]
